FAERS Safety Report 19466680 (Version 2)
Quarter: 2021Q3

REPORT INFORMATION
  Report Type: Spontaneous
  Country: US (occurrence: US)
  Receive Date: 20210628
  Receipt Date: 20210721
  Transmission Date: 20211014
  Serious: No
  Sender: FDA-Public Use
  Company Number: US-JNJFOC-20210647904

PATIENT
  Age: 90 Year
  Sex: Male

DRUGS (5)
  1. XARELTO [Suspect]
     Active Substance: RIVAROXABAN
     Indication: PRODUCT USED FOR UNKNOWN INDICATION
     Route: 048
     Dates: start: 20210615, end: 20210630
  2. FOLATE [Concomitant]
     Active Substance: FOLATE SODIUM
  3. AMIODARONE [Concomitant]
     Active Substance: AMIODARONE
     Indication: CARDIAC DISORDER
     Dates: start: 202105
  4. ASPRIN [Concomitant]
     Active Substance: ASPIRIN
     Dates: start: 2017
  5. TAMSULOSIN [Concomitant]
     Active Substance: TAMSULOSIN
     Indication: HYPERTENSION

REACTIONS (3)
  - Epistaxis [Recovered/Resolved]
  - Asthenia [Recovered/Resolved]
  - Contusion [Recovered/Resolved]

NARRATIVE: CASE EVENT DATE: 20210618
